FAERS Safety Report 7547783-X (Version None)
Quarter: 2011Q2

REPORT INFORMATION
  Report Type: 
  Country: None (occurrence: None)
  Receive Date: 20110615
  Receipt Date: 20110610
  Transmission Date: 20111010
  Serious: Yes (Hospitalization, Other)
  Sender: FDA-Public Use
  Company Number: IT-BRISTOL-MYERS SQUIBB COMPANY-15791940

PATIENT
  Age: 83 Year
  Sex: Female

DRUGS (3)
  1. FUROSEMIDE [Concomitant]
     Dosage: 1DF:25MG TABS
  2. ALLOPURINOL [Concomitant]
     Indication: HYPERURICAEMIA
     Dosage: ZYLORIC TABS
     Dates: start: 20110101, end: 20110513
  3. COUMADIN [Suspect]
     Indication: ATRIAL FIBRILLATION
     Route: 048
     Dates: start: 20090101, end: 20110513

REACTIONS (4)
  - INTERNATIONAL NORMALISED RATIO INCREASED [None]
  - COLON CANCER METASTATIC [None]
  - HYPERURICAEMIA [None]
  - HYPERTENSION [None]
